FAERS Safety Report 20673239 (Version 1)
Quarter: 2022Q2

REPORT INFORMATION
  Report Type: Spontaneous
  Country: US (occurrence: None)
  Receive Date: 20220403
  Receipt Date: 20220403
  Transmission Date: 20220720
  Serious: Yes (Hospitalization)
  Sender: FDA-Public Use
  Company Number: None

PATIENT
  Age: 37 Year
  Sex: Male

DRUGS (1)
  1. PREDNISONE [Suspect]
     Active Substance: PREDNISONE
     Indication: Gout
     Dosage: FREQUENCY : DAILY;?
     Route: 048
     Dates: start: 20150127, end: 20220105

REACTIONS (2)
  - Suicidal ideation [None]
  - Agitation [None]

NARRATIVE: CASE EVENT DATE: 20220120
